FAERS Safety Report 8155151-5 (Version None)
Quarter: 2012Q1

REPORT INFORMATION
  Report Type: 
  Country: None (occurrence: None)
  Receive Date: 20120221
  Receipt Date: 20120216
  Transmission Date: 20120608
  Serious: Yes (Death, Life-Threatening, Hospitalization)
  Sender: FDA-Public Use
  Company Number: FR-ASTRAZENECA-2012SE05826

PATIENT
  Age: 65 Year
  Sex: Male

DRUGS (13)
  1. HYZAAR [Suspect]
     Indication: HYPERTENSION
     Route: 048
     Dates: start: 20100901, end: 20110201
  2. LANSOPRAZOLE [Suspect]
     Route: 048
     Dates: start: 20100901
  3. LOSARTAN POTASSIUM AND HYDROCHLOROTHIAZIDE [Suspect]
     Indication: HYPERTENSION
     Dosage: 100 MG / 25 MG PER DOSE
     Route: 048
     Dates: start: 20110201
  4. ACETAMINOPHEN [Concomitant]
  5. TRAMADOL HCL [Concomitant]
     Indication: PAIN
  6. HYPERIUM [Suspect]
     Indication: HYPERTENSION
     Route: 065
     Dates: start: 20100901
  7. SYMBICORT [Suspect]
     Indication: CHRONIC OBSTRUCTIVE PULMONARY DISEASE
     Route: 055
     Dates: start: 20100901
  8. SUTENT [Suspect]
     Indication: METASTATIC RENAL CELL CARCINOMA
     Dosage: 50 MG CYCLIC ONCE DAILY
     Route: 048
     Dates: start: 20101020, end: 20111213
  9. AMLODIPINE BESYLATE [Suspect]
     Route: 048
     Dates: start: 20101201
  10. POTASSIUM CHLORIDE [Concomitant]
  11. SPASFON [Concomitant]
  12. MOVIPREP [Concomitant]
     Indication: CONSTIPATION
     Dosage: AS REQUIRED
  13. LOVENOX [Suspect]
     Dosage: 4000 IU ANTI-XA/4 ML
     Route: 058
     Dates: start: 20111107, end: 20111125

REACTIONS (1)
  - AORTIC DISSECTION [None]
